FAERS Safety Report 21913238 (Version 1)
Quarter: 2023Q1

REPORT INFORMATION
  Report Type: Spontaneous
  Country: US (occurrence: US)
  Receive Date: 20230125
  Receipt Date: 20230125
  Transmission Date: 20230418
  Serious: No
  Sender: FDA-Public Use
  Company Number: CA-ALLERGAN-2238245US

PATIENT
  Sex: Female

DRUGS (10)
  1. BOTOX [Suspect]
     Active Substance: ONABOTULINUMTOXINA
     Indication: Skin wrinkling
     Dosage: 100 UNITS, SINGLE
     Dates: start: 20220623, end: 20220623
  2. BOTOX [Suspect]
     Active Substance: ONABOTULINUMTOXINA
     Dosage: 10 UNITS, SINGLE
     Route: 030
  3. BOTOX [Suspect]
     Active Substance: ONABOTULINUMTOXINA
     Dosage: 6-10 UNIT
     Route: 030
  4. JUVEDERM [Suspect]
     Active Substance: HYALURONIC ACID
     Indication: Skin wrinkling
     Dosage: 1 ML
  5. JUVEDERM [Suspect]
     Active Substance: HYALURONIC ACID
     Indication: Skin wrinkling
     Dosage: 1 ML
  6. JUVEDERM [Suspect]
     Active Substance: HYALURONIC ACID
     Dosage: 1 ML
  7. JUVEDERM [Suspect]
     Active Substance: HYALURONIC ACID
     Dosage: 1 ML
  8. JUVEDERM [Suspect]
     Active Substance: HYALURONIC ACID
     Dosage: 1 ML
  9. IBUPROFEN [Concomitant]
     Active Substance: IBUPROFEN
  10. VITAMINS [Concomitant]
     Active Substance: VITAMINS

REACTIONS (10)
  - Pregnancy [Unknown]
  - Retained placenta or membranes [Unknown]
  - Off label use [Unknown]
  - Respiratory disorder [Recovered/Resolved]
  - Live birth [Unknown]
  - Food poisoning [Unknown]
  - Vomiting [Unknown]
  - Injection site swelling [Recovered/Resolved]
  - Injection site pain [Recovered/Resolved]
  - Injection site bruising [Recovered/Resolved]
